FAERS Safety Report 9420080 (Version 2)
Quarter: 2013Q3

REPORT INFORMATION
  Report Type: Report from Study
  Country: US (occurrence: US)
  Receive Date: 20130725
  Receipt Date: 20130805
  Transmission Date: 20140515
  Serious: Yes (Hospitalization)
  Sender: FDA-Public Use
  Company Number: US-GLAXOSMITHKLINE-A1034803A

PATIENT
  Sex: 0

DRUGS (11)
  1. LAPATINIB [Suspect]
     Indication: BREAST CANCER
     Dates: start: 20130619
  2. TRASTUZUMAB [Suspect]
     Indication: BREAST CANCER
     Dates: start: 20130619
  3. TAXOL [Suspect]
     Indication: BREAST CANCER
     Dates: start: 20130619
  4. ACETAMINOPHEN + HYDROCODONE [Concomitant]
     Dates: start: 20130514, end: 20130530
  5. CEPHALEXIN [Concomitant]
     Dates: start: 20130514
  6. DEXAMETHASONE [Concomitant]
     Dates: start: 20130619
  7. DICLOFENAC POTASSIUM [Concomitant]
     Dates: start: 20130514, end: 20130530
  8. DOCUSATE SODIUM [Concomitant]
     Dates: start: 20130514, end: 20130619
  9. NAPROXEN [Concomitant]
     Dates: start: 20130619
  10. ONDANSETRON [Concomitant]
     Dates: start: 20130616
  11. VITAMIN D [Concomitant]
     Dates: start: 20130616

REACTIONS (2)
  - Pyrexia [Recovered/Resolved]
  - Fatigue [Recovered/Resolved]
